FAERS Safety Report 6728339-5 (Version None)
Quarter: 2010Q2

REPORT INFORMATION
  Report Type: 
  Country: None (occurrence: None)
  Receive Date: 20100517
  Receipt Date: 20100506
  Transmission Date: 20101027
  Serious: Yes (Other)
  Sender: FDA-Public Use
  Company Number: GB-BAXTER-2010BH012733

PATIENT
  Age: 41 Year
  Sex: Male
  Weight: 120 kg

DRUGS (4)
  1. METRONIDAZOLE [Suspect]
     Indication: TONSILLECTOMY
     Route: 042
     Dates: start: 20100423, end: 20100423
  2. AUGMENTIN '125' [Concomitant]
     Indication: INFECTION
     Route: 048
     Dates: start: 20100417, end: 20100423
  3. CEFTRIAXONE [Concomitant]
     Indication: INFECTION
     Route: 042
     Dates: start: 20100421, end: 20100423
  4. PARACETAMOL [Concomitant]
     Indication: DRUG USE FOR UNKNOWN INDICATION
     Route: 048

REACTIONS (2)
  - HYPOTENSION [None]
  - TACHYCARDIA [None]
